FAERS Safety Report 8789216 (Version 1)
Quarter: 2012Q4

REPORT INFORMATION
  Report Type: Spontaneous
  Country: US (occurrence: None)
  Receive Date: 20120910
  Receipt Date: 20120910
  Transmission Date: 20130627
  Serious: Yes (Other)
  Sender: FDA-Public Use
  Company Number: None

PATIENT
  Age: 7 Year
  Sex: Male
  Weight: 22.68 kg

DRUGS (1)
  1. DOXYCYCLINE [Suspect]

REACTIONS (6)
  - Palpitations [None]
  - Loss of consciousness [None]
  - Depression [None]
  - Aggression [None]
  - Fear [None]
  - Anxiety [None]
